FAERS Safety Report 12822144 (Version 1)
Quarter: 2016Q4

REPORT INFORMATION
  Report Type: Spontaneous
  Country: US (occurrence: US)
  Receive Date: 20161006
  Receipt Date: 20161006
  Transmission Date: 20170207
  Serious: No
  Sender: FDA-Public Use
  Company Number: US-SHIONOGI, INC-2016000360

PATIENT
  Age: 68 Year
  Sex: Female

DRUGS (3)
  1. OSPHENA [Suspect]
     Active Substance: OSPEMIFENE
     Indication: VULVOVAGINAL DRYNESS
     Dosage: 60 MG, QD
     Route: 065
     Dates: start: 201602
  2. AMLODIPIN                          /00972401/ [Concomitant]
     Active Substance: AMLODIPINE BESYLATE
     Indication: HYPERTENSION
     Dosage: 5 MG, UNK
     Route: 065
  3. OSPHENA [Suspect]
     Active Substance: OSPEMIFENE
     Indication: OFF LABEL USE

REACTIONS (7)
  - Lethargy [Unknown]
  - Heart rate decreased [Not Recovered/Not Resolved]
  - Sluggishness [Unknown]
  - Feeling cold [Not Recovered/Not Resolved]
  - Off label use [Unknown]
  - Somnolence [Unknown]
  - Feeling of relaxation [Unknown]

NARRATIVE: CASE EVENT DATE: 201602
